FAERS Safety Report 23089253 (Version 1)
Quarter: 2023Q4

REPORT INFORMATION
  Report Type: Spontaneous
  Country: JP (occurrence: JP)
  Receive Date: 20231020
  Receipt Date: 20231020
  Transmission Date: 20240110
  Serious: Yes (Death, Hospitalization)
  Sender: FDA-Public Use
  Company Number: JP-002147023-NVSC2023JP224794

PATIENT
  Age: 69 Year
  Sex: Male

DRUGS (3)
  1. TISAGENLECLEUCEL [Suspect]
     Active Substance: TISAGENLECLEUCEL
     Indication: Diffuse large B-cell lymphoma
     Dosage: UNK, ONCE/SINGLE, INTRAVENOUS INFUSION
     Route: 042
  2. FLUDARABINE [Concomitant]
     Active Substance: FLUDARABINE PHOSPHATE
     Indication: Lymphodepletion
     Dosage: UNK
     Route: 065
  3. CYCLOPHOSPHAMIDE [Concomitant]
     Active Substance: CYCLOPHOSPHAMIDE
     Indication: Lymphodepletion
     Dosage: UNK
     Route: 065

REACTIONS (9)
  - Autonomic nervous system imbalance [Fatal]
  - Brain herniation [Fatal]
  - Stomatitis [Recovered/Resolved]
  - Cytopenia [Recovered/Resolved]
  - Pneumonia [Recovered/Resolved]
  - Inflammation [Recovered/Resolved]
  - Cytopenia [Recovered/Resolved]
  - Inflammation [Recovered/Resolved]
  - Inflammation [Unknown]
